FAERS Safety Report 18460327 (Version 1)
Quarter: 2020Q4

REPORT INFORMATION
  Report Type: Spontaneous
  Country: CN (occurrence: CN)
  Receive Date: 20201103
  Receipt Date: 20201103
  Transmission Date: 20210114
  Serious: Yes (Other)
  Sender: FDA-Public Use
  Company Number: CN-BAXTER-2020BAX022023

PATIENT
  Age: 34 Year
  Sex: Female

DRUGS (4)
  1. ENDOXAN [Suspect]
     Active Substance: CYCLOPHOSPHAMIDE
     Dosage: NS100ML + CYCLOPHOSPHAMIDE 0.4G, CUMULATIVE DOSE: 0.6 G
     Route: 041
     Dates: start: 20201011, end: 20201012
  2. 0.9% SODIUM CHLORIDE INJECTION [Suspect]
     Active Substance: SODIUM CHLORIDE
     Indication: MEDICATION DILUTION
     Dosage: NS 50ML + CYCLOPHOSPHAMIDE 0.2G
     Route: 041
     Dates: start: 20201009, end: 20201010
  3. 0.9% SODIUM CHLORIDE INJECTION [Suspect]
     Active Substance: SODIUM CHLORIDE
     Dosage: NS 100ML + CYCLOPHOSPHAMIDE 0.4G
     Route: 041
     Dates: start: 20201011, end: 20201012
  4. ENDOXAN [Suspect]
     Active Substance: CYCLOPHOSPHAMIDE
     Indication: SYSTEMIC LUPUS ERYTHEMATOSUS
     Dosage: NS50ML + CYCLOPHOSPHAMIDE 0.2G, CUMULATIVE DOSE: 0.6 G
     Route: 041
     Dates: start: 20201009, end: 20201010

REACTIONS (2)
  - Drug-induced liver injury [Unknown]
  - Hepatic function abnormal [Recovering/Resolving]

NARRATIVE: CASE EVENT DATE: 20201015
